FAERS Safety Report 4731374-X (Version None)
Quarter: 2005Q3

REPORT INFORMATION
  Report Type: 
  Country: None (occurrence: None)
  Receive Date: 20050801
  Receipt Date: 20050801
  Transmission Date: 20060218
  Serious: Yes (Disabling, Other)
  Sender: FDA-Public Use
  Company Number: None

PATIENT
  Age: 41 Year
  Sex: Male
  Weight: 98.8842 kg

DRUGS (3)
  1. ZICAM       MATRIXX [Suspect]
     Indication: NASOPHARYNGITIS
     Dosage: AS DIRECTED     NASAL
     Route: 045
     Dates: start: 20050314, end: 20050318
  2. PREDNISONE [Concomitant]
  3. LEVAQUIN [Concomitant]

REACTIONS (4)
  - ACTIVITIES OF DAILY LIVING IMPAIRED [None]
  - CRANIAL NERVE INJURY [None]
  - DYSGEUSIA [None]
  - PAROSMIA [None]
